FAERS Safety Report 14929850 (Version 1)
Quarter: 2018Q2

REPORT INFORMATION
  Report Type: Spontaneous
  Country: US (occurrence: US)
  Receive Date: 20180523
  Receipt Date: 20180523
  Transmission Date: 20180711
  Serious: Yes (Hospitalization, Other)
  Sender: FDA-Public Use
  Company Number: US-NOVOPROD-601064

PATIENT
  Age: 67 Year
  Sex: Female

DRUGS (3)
  1. NOVOLOG [Suspect]
     Active Substance: INSULIN ASPART
     Indication: TYPE 1 DIABETES MELLITUS
     Dosage: SLIDING SCALE
     Route: 058
  2. LANTUS [Concomitant]
     Active Substance: INSULIN GLARGINE
     Indication: PRODUCT USED FOR UNKNOWN INDICATION
     Dosage: 25 U, UNK
     Route: 058
     Dates: end: 2018
  3. LANTUS [Concomitant]
     Active Substance: INSULIN GLARGINE
     Dosage: 9 U, BID
     Route: 058
     Dates: start: 2018

REACTIONS (7)
  - Hypoglycaemic unconsciousness [Recovered/Resolved]
  - Blood glucose decreased [Unknown]
  - Blood glucose increased [Recovered/Resolved]
  - Fibula fracture [Recovering/Resolving]
  - Fall [Recovered/Resolved]
  - Tibia fracture [Recovering/Resolving]
  - Ligament sprain [Recovering/Resolving]

NARRATIVE: CASE EVENT DATE: 20180317
